FAERS Safety Report 4960954-1 (Version None)
Quarter: 2006Q1

REPORT INFORMATION
  Report Type: 
  Country: None (occurrence: None)
  Receive Date: 20060130
  Receipt Date: 20050607
  Transmission Date: 20060701
  Serious: Yes (Hospitalization)
  Sender: FDA-Public Use
  Company Number: 142297USA

PATIENT
  Age: 58 Year
  Sex: Male
  Weight: 110.6777 kg

DRUGS (21)
  1. COPAXONE [Suspect]
     Indication: MULTIPLE SCLEROSIS
     Dates: start: 20040101, end: 20050401
  2. NEURONTIN [Concomitant]
  3. ZANAFLEX [Concomitant]
  4. METOPROLOL SUCCINATE [Concomitant]
  5. POTASSIUM [Concomitant]
  6. MAGNESIUM [Concomitant]
  7. PROTONIX [Concomitant]
  8. EFFEXOR [Concomitant]
  9. LASIX [Concomitant]
  10. PLAVIX [Concomitant]
  11. LISINOPRIL [Concomitant]
  12. ECOTRIN [Concomitant]
  13. BACLOFEN [Concomitant]
  14. QUININE [Concomitant]
  15. CLARITIN [Concomitant]
  16. LIPITOR [Concomitant]
  17. NIASPAN [Concomitant]
  18. MELATONIN [Concomitant]
  19. AMBIEN [Concomitant]
  20. VICODIN [Concomitant]
  21. CIPRO [Concomitant]

REACTIONS (7)
  - COMA [None]
  - CORONARY ARTERY DISEASE [None]
  - HYPERTENSION [None]
  - HYPOTENSION [None]
  - MULTIPLE SCLEROSIS RELAPSE [None]
  - PNEUMONIA [None]
  - RENAL IMPAIRMENT [None]
